FAERS Safety Report 24957761 (Version 3)
Quarter: 2025Q4

REPORT INFORMATION
  Report Type: Report from Study
  Country: US (occurrence: US)
  Receive Date: 20250212
  Receipt Date: 20251019
  Transmission Date: 20260118
  Serious: Yes (Other)
  Sender: ABBVIE
  Company Number: US-ABBVIE-6120355

PATIENT
  Sex: Female

DRUGS (2)
  1. SKYRIZI [Suspect]
     Active Substance: RISANKIZUMAB-RZAA
     Indication: Psoriasis
     Route: 058
     Dates: start: 20240812
  2. SKYRIZI [Suspect]
     Active Substance: RISANKIZUMAB-RZAA
     Route: 058

REACTIONS (12)
  - Chemotherapy [Unknown]
  - Kidney infection [Not Recovered/Not Resolved]
  - Brain fog [Not Recovered/Not Resolved]
  - Pruritus [Not Recovered/Not Resolved]
  - Back disorder [Unknown]
  - Vision blurred [Unknown]
  - Headache [Unknown]
  - Abdominal pain upper [Unknown]
  - Scab [Not Recovered/Not Resolved]
  - Generalised oedema [Unknown]
  - Blood cholesterol increased [Unknown]
  - Therapeutic response shortened [Unknown]
